FAERS Safety Report 9733274 (Version 1)
Quarter: 2013Q4

REPORT INFORMATION
  Report Type: Report from Study
  Country: DE (occurrence: DE)
  Receive Date: 20131205
  Receipt Date: 20131205
  Transmission Date: 20140711
  Serious: Yes (Hospitalization)
  Sender: FDA-Public Use
  Company Number: DE-UCBSA-104465

PATIENT
  Age: 65 Year
  Sex: Male
  Weight: 74 kg

DRUGS (7)
  1. NEUPRO [Suspect]
     Indication: RESTLESS LEGS SYNDROME
     Route: 062
  2. SIMVASTATIN [Concomitant]
     Indication: HYPERCHOLESTEROLAEMIA
     Route: 048
  3. VALORON [Concomitant]
     Indication: RESTLESS LEGS SYNDROME
     Dosage: 15 DROPS
     Route: 048
  4. ATACAND [Concomitant]
     Indication: HYPERTENSION
     Route: 048
  5. ASPIRIN [Concomitant]
     Indication: PLATELET AGGREGATION INHIBITION
     Route: 048
  6. ARCOXIA [Concomitant]
     Indication: TOXICITY TO VARIOUS AGENTS
     Route: 048
  7. ZOPICLONE [Concomitant]
     Indication: SLEEP DISORDER
     Route: 048

REACTIONS (1)
  - Vascular graft [Unknown]
